FAERS Safety Report 6178726-1 (Version None)
Quarter: 2009Q2

REPORT INFORMATION
  Report Type: 
  Country: None (occurrence: None)
  Receive Date: 20090430
  Receipt Date: 20090424
  Transmission Date: 20091009
  Serious: Yes (Hospitalization)
  Sender: FDA-Public Use
  Company Number: 255091

PATIENT
  Age: 38 Year
  Sex: Female

DRUGS (9)
  1. METHYLPREDNISOLONE 4MG TAB [Suspect]
     Indication: TRANSPLANT REJECTION
     Dosage: 500 MG, FOUR TIMES FOR 3 DAYS, INTRAVENOUS
     Route: 042
  2. ANTITHYMOCYTE IMMUNOGLOBULIN (RABBIT)) [Suspect]
     Indication: TRANSPLANT REJECTION
     Dosage: 1.5 MG/KG, TWICE FOR 3 DAYS
  3. ALEMTUZUMAB [Suspect]
     Indication: TRANSPLANT REJECTION
     Dosage: 30 MG, ONCE
  4. TACHOLIMUS [Suspect]
     Indication: TRANSPLANT REJECTION
  5. PREDNISONE [Suspect]
     Indication: TRANSPLANT REJECTION
     Dosage: 5 MG, DAILY
  6. VORICONAZOLE [Concomitant]
  7. TRIMETHOPRIM + SULFAMETHOXAZOLE [Concomitant]
  8. GANCICLOVIR [Concomitant]
  9. AMPHOTERICAN B [Concomitant]

REACTIONS (11)
  - ATAXIA [None]
  - CONFUSIONAL STATE [None]
  - DYSARTHRIA [None]
  - ENCEPHALITIS [None]
  - JC VIRUS TEST POSITIVE [None]
  - NUCLEAR MAGNETIC RESONANCE IMAGING BRAIN ABNORMAL [None]
  - ORGANISING PNEUMONIA [None]
  - PROGRESSIVE MULTIFOCAL LEUKOENCEPHALOPATHY [None]
  - RESPIRATORY FAILURE [None]
  - SEPSIS [None]
  - VISUAL IMPAIRMENT [None]
